FAERS Safety Report 20763705 (Version 2)
Quarter: 2022Q4

REPORT INFORMATION
  Report Type: Spontaneous
  Country: US (occurrence: US)
  Receive Date: 20220428
  Receipt Date: 20221122
  Transmission Date: 20230112
  Serious: No
  Sender: FDA-Public Use
  Company Number: US-PFIZER INC-202200404675

PATIENT
  Age: 57 Year
  Sex: Female

DRUGS (1)
  1. IBRANCE [Suspect]
     Active Substance: PALBOCICLIB
     Dosage: DAILY FOR 21 DAYS ON, AND 7 DAYS OFF
     Route: 048
     Dates: start: 20211015, end: 202210

REACTIONS (2)
  - Illness [Unknown]
  - White blood cell count decreased [Unknown]
